FAERS Safety Report 8252750-7 (Version None)
Quarter: 2012Q2

REPORT INFORMATION
  Report Type: 
  Country: None (occurrence: None)
  Receive Date: 20120402
  Receipt Date: 20110407
  Transmission Date: 20120825
  Serious: No
  Sender: FDA-Public Use
  Company Number: US-ABBOTT-11P-163-0804406-00

PATIENT
  Sex: Male
  Weight: 92.272 kg

DRUGS (12)
  1. FISH OIL [Concomitant]
     Indication: MEDICAL DIET
     Dosage: DAILY DOSE: 3000 MILLIGRAM(S)
     Route: 048
  2. HYDROCHLOROTHIAZIDE [Concomitant]
     Indication: BLOOD PRESSURE INCREASED
     Dosage: DAILY DOSE: 25 MILLIGRAM(S)
     Route: 048
  3. METOPROLOL SUCCINATE [Concomitant]
     Indication: BLOOD PRESSURE INCREASED
     Dosage: DAILY DOSE: 50 MILLIGRAM(S)
     Route: 048
  4. CALCIUM [Concomitant]
     Indication: MINERAL SUPPLEMENTATION
     Dosage: DAILY DOSE: 600 MILLIGRAM(S)
     Route: 048
  5. SERENOA REPENS [Concomitant]
     Indication: MEDICAL DIET
     Dosage: DAILY DOSE: 1800 MILLIGRAM(S)
     Route: 048
  6. ARGININE [Concomitant]
     Indication: PRODUCT USED FOR UNKNOWN INDICATION
     Dosage: DAILY DOSE: 2000 MILLIGRAM(S)
     Route: 048
  7. GLUCOSAMINE [Concomitant]
     Indication: MEDICAL DIET
     Dosage: DAILY DOSE:  UNKNOWN, FREQUENCY: TWICE A DAY
     Route: 048
  8. ERGOCALCIFEROL [Concomitant]
     Indication: VITAMIN SUPPLEMENTATION
     Dosage: DAILY DOSE: 1000 UNIT, AS USED: 1000 UNIT, FREQUENCY: ONCE A DAY
     Route: 048
  9. SILDENAFIL CITRATE [Concomitant]
     Indication: ERECTILE DYSFUNCTION
     Dosage: DAILY DOSE:  UNKNOWN, AS USED: 100 MILLIGRAM(S), 1/4 TABLET AS  NEEDED
     Route: 048
  10. ASCORBIC ACID AND ERGOCALCIFEROL AND FOLIC ACID AND NICOTINAMIDE AND P [Concomitant]
     Indication: VITAMIN SUPPLEMENTATION
     Dosage: DAILY DOSE:  UNKNOWN, FREQUENCY: ONCE A DAY
     Route: 048
  11. PILOCARPINE [Concomitant]
     Indication: GLAUCOMA
     Dosage: DAILY DOSE:  UNKNOWN, FREQUENCY: TWICE A WEEK, 1 DROP BOTH EYES (OU) WEEKLY
     Route: 047
  12. TESTOSTERONE [Suspect]
     Indication: BLOOD TESTOSTERONE DECREASED
     Dosage: DAILY DOSE:  UNKNOWN, AS USED: 1 PERCENT, FREQUENCY: ONCE A DAY, 5 GRAM(S) PACKETS
     Route: 062
     Dates: start: 20020401

REACTIONS (2)
  - PHARYNGITIS [None]
  - SLEEP APNOEA SYNDROME [None]
